FAERS Safety Report 6550999-2 (Version None)
Quarter: 2010Q1

REPORT INFORMATION
  Report Type: 
  Country: None (occurrence: None)
  Receive Date: 20100122
  Receipt Date: 20100122
  Transmission Date: 20100710
  Serious: Yes (Disabling)
  Sender: FDA-Public Use
  Company Number: None

PATIENT
  Age: 20 Year
  Sex: Female
  Weight: 42.1845 kg

DRUGS (5)
  1. TRAMADOL HYDROCHLORIDE [Suspect]
     Indication: PAIN
     Dosage: 100 MG 3 TIMES A DAY OTIC
     Dates: start: 20100106, end: 20100109
  2. TRAMADOL HYDROCHLORIDE [Suspect]
     Indication: PAIN
     Dosage: 100 MG 3 TIMES A DAY OTIC
     Dates: start: 20100117, end: 20100117
  3. VITAMIN D [Concomitant]
  4. LYRICA [Concomitant]
  5. PLAQUENIL [Concomitant]

REACTIONS (1)
  - MICTURITION DISORDER [None]
